FAERS Safety Report 16340786 (Version 1)
Quarter: 2019Q2

REPORT INFORMATION
  Report Type: Spontaneous
  Country: GB (occurrence: GB)
  Receive Date: 20190522
  Receipt Date: 20190522
  Transmission Date: 20190711
  Serious: Yes (Other)
  Sender: FDA-Public Use
  Company Number: GB-TEVA-2019-GB-1051899

PATIENT
  Age: 56 Year
  Sex: Female
  Weight: 92.07 kg

DRUGS (7)
  1. FEMOSTON-CONTI [Concomitant]
     Active Substance: DYDROGESTERONE\ESTRADIOL
     Dosage: 1MG/5MG
  2. SODIUM CROMOGLICATE [Concomitant]
     Active Substance: CROMOLYN SODIUM
  3. RAMIPRIL. [Suspect]
     Active Substance: RAMIPRIL
     Route: 048
     Dates: start: 20181030, end: 20181126
  4. CETIRIZINE [Concomitant]
     Active Substance: CETIRIZINE HYDROCHLORIDE
     Dosage: 10 MILLIGRAM
  5. OMEPRAZOLE. [Concomitant]
     Active Substance: OMEPRAZOLE
     Dosage: 20 MILLIGRAMS
  6. RAMIPRIL. [Suspect]
     Active Substance: RAMIPRIL
     Dates: start: 20180918, end: 20181002
  7. RAMIPRIL. [Suspect]
     Active Substance: RAMIPRIL
     Indication: HYPERTENSION
     Dosage: 2.5 MILLIGRAMS
     Route: 048
     Dates: start: 20181003, end: 20181129

REACTIONS (2)
  - Cough [Recovered/Resolved]
  - Sputum increased [Recovered/Resolved with Sequelae]

NARRATIVE: CASE EVENT DATE: 20180925
